FAERS Safety Report 5273935-8 (Version None)
Quarter: 2007Q1

REPORT INFORMATION
  Report Type: 
  Country: None (occurrence: None)
  Receive Date: 20070323
  Receipt Date: 20070315
  Transmission Date: 20070707
  Serious: Yes (Other)
  Sender: FDA-Public Use
  Company Number: US-ELI_LILLY_AND_COMPANY-US200703004064

PATIENT
  Age: 84 Year
  Sex: Male
  Weight: 70.294 kg

DRUGS (1)
  1. ALIMTA [Suspect]
     Dosage: 930 MG, UNK
     Dates: start: 20070125

REACTIONS (1)
  - ATRIAL FIBRILLATION [None]
